FAERS Safety Report 24281176 (Version 3)
Quarter: 2024Q4

REPORT INFORMATION
  Report Type: Spontaneous
  Country: JP (occurrence: JP)
  Receive Date: 20240904
  Receipt Date: 20241216
  Transmission Date: 20250114
  Serious: Yes (Hospitalization, Other)
  Sender: ALEXION PHARMACEUTICALS
  Company Number: 2024A129713

PATIENT
  Age: 59 Year

DRUGS (31)
  1. IMFINZI [Suspect]
     Active Substance: DURVALUMAB
     Indication: Non-small cell lung cancer
     Dosage: 1500 MILLIGRAM, Q3W
  2. IMFINZI [Suspect]
     Active Substance: DURVALUMAB
     Dosage: 1500 MILLIGRAM, Q3W
     Route: 041
  3. IMFINZI [Suspect]
     Active Substance: DURVALUMAB
     Dosage: 1500 MILLIGRAM, Q3W
  4. IMFINZI [Suspect]
     Active Substance: DURVALUMAB
     Dosage: 1500 MILLIGRAM, Q3W
     Route: 041
  5. IMFINZI [Suspect]
     Active Substance: DURVALUMAB
     Dosage: 1500 MILLIGRAM, Q4W
  6. IMFINZI [Suspect]
     Active Substance: DURVALUMAB
     Dosage: 1500 MILLIGRAM, Q4W
     Route: 041
  7. IMFINZI [Suspect]
     Active Substance: DURVALUMAB
     Dosage: 1500 MILLIGRAM, Q4W
  8. IMFINZI [Suspect]
     Active Substance: DURVALUMAB
     Dosage: 1500 MILLIGRAM, Q4W
     Route: 041
  9. IMJUDO [Suspect]
     Active Substance: TREMELIMUMAB\TREMELIMUMAB-ACTL
     Indication: Non-small cell lung cancer
     Dosage: 75 MILLIGRAM, Q3W
  10. IMJUDO [Suspect]
     Active Substance: TREMELIMUMAB\TREMELIMUMAB-ACTL
     Dosage: 75 MILLIGRAM, Q3W
     Route: 041
  11. IMJUDO [Suspect]
     Active Substance: TREMELIMUMAB\TREMELIMUMAB-ACTL
     Dosage: 75 MILLIGRAM, Q3W
  12. IMJUDO [Suspect]
     Active Substance: TREMELIMUMAB\TREMELIMUMAB-ACTL
     Dosage: 75 MILLIGRAM, Q3W
     Route: 041
  13. CARBOPLATIN [Concomitant]
     Active Substance: CARBOPLATIN
     Indication: Non-small cell lung cancer
  14. CARBOPLATIN [Concomitant]
     Active Substance: CARBOPLATIN
  15. CARBOPLATIN [Concomitant]
     Active Substance: CARBOPLATIN
     Dosage: DOSE UNKNOWN
     Route: 065
  16. CARBOPLATIN [Concomitant]
     Active Substance: CARBOPLATIN
     Dosage: DOSE UNKNOWN
     Route: 065
  17. CARBOPLATIN [Concomitant]
     Active Substance: CARBOPLATIN
     Dosage: DOSE UNKNOWN
     Route: 065
  18. CARBOPLATIN [Concomitant]
     Active Substance: CARBOPLATIN
     Dosage: DOSE UNKNOWN
     Route: 065
  19. CARBOPLATIN [Concomitant]
     Active Substance: CARBOPLATIN
     Dosage: DOSE UNKNOWN
     Route: 065
  20. CARBOPLATIN [Concomitant]
     Active Substance: CARBOPLATIN
     Dosage: DOSE UNKNOWN
     Route: 065
  21. CARBOPLATIN [Concomitant]
     Active Substance: CARBOPLATIN
     Dosage: DOSE UNKNOWN
     Route: 065
  22. CARBOPLATIN [Concomitant]
     Active Substance: CARBOPLATIN
     Dosage: DOSE UNKNOWN
     Route: 065
  23. PACLITAXEL [Concomitant]
     Active Substance: PACLITAXEL
     Indication: Non-small cell lung cancer
  24. BETAMETHASONE [Concomitant]
     Active Substance: BETAMETHASONE
     Dosage: DOSE UNKNOWN
     Route: 065
  25. BETAMETHASONE [Concomitant]
     Active Substance: BETAMETHASONE
     Dosage: DOSE UNKNOWN
     Route: 065
  26. BETAMETHASONE [Concomitant]
     Active Substance: BETAMETHASONE
     Dosage: DOSE UNKNOWN
     Route: 065
  27. BETAMETHASONE [Concomitant]
     Active Substance: BETAMETHASONE
     Dosage: DOSE UNKNOWN
     Route: 065
  28. BETAMETHASONE [Concomitant]
     Active Substance: BETAMETHASONE
     Dosage: DOSE UNKNOWN
     Route: 065
  29. BETAMETHASONE [Concomitant]
     Active Substance: BETAMETHASONE
     Dosage: DOSE UNKNOWN
     Route: 065
  30. BETAMETHASONE [Concomitant]
     Active Substance: BETAMETHASONE
     Dosage: DOSE UNKNOWN
     Route: 065
  31. BETAMETHASONE [Concomitant]
     Active Substance: BETAMETHASONE
     Dosage: DOSE UNKNOWN
     Route: 065

REACTIONS (6)
  - Syncope [Unknown]
  - Herpes zoster [Unknown]
  - Blood creatinine increased [Unknown]
  - Arthralgia [Unknown]
  - Myalgia [Unknown]
  - Blood creatinine increased [Unknown]
